FAERS Safety Report 6960113-7 (Version None)
Quarter: 2010Q3

REPORT INFORMATION
  Report Type: 
  Country: None (occurrence: None)
  Receive Date: 20100901
  Receipt Date: 20100826
  Transmission Date: 20110219
  Serious: No
  Sender: FDA-Public Use
  Company Number: ES-SHIRE-SPV1-2010-01032

PATIENT
  Sex: Female
  Weight: 59.5 kg

DRUGS (5)
  1. FOSRENOL [Suspect]
     Indication: RENAL OSTEODYSTROPHY
     Dosage: 750 MG, 3X/DAY:TID
     Route: 048
     Dates: start: 20100517, end: 20100531
  2. MIMPARA                            /01735301/ [Concomitant]
     Indication: HYPOPARATHYROIDISM SECONDARY
     Dosage: 30 / 48H
     Route: 048
  3. REGULAR INSULIN [Concomitant]
     Indication: DIABETES MELLITUS
     Route: 003
  4. LOSARTAN [Concomitant]
     Indication: HYPERTENSION
     Dosage: 12.5 UNK, 1X/DAY:QD
     Route: 048
  5. UNIKET [Concomitant]
     Indication: ISCHAEMIC CARDIOMYOPATHY
     Dosage: 20 UNK, 2X/DAY:BID
     Route: 048

REACTIONS (3)
  - ABDOMINAL PAIN [None]
  - CONSTIPATION [None]
  - X-RAY ABNORMAL [None]
